FAERS Safety Report 5642468-9 (Version None)
Quarter: 2008Q1

REPORT INFORMATION
  Report Type: 
  Country: None (occurrence: None)
  Receive Date: 20080228
  Receipt Date: 20080226
  Transmission Date: 20080703
  Serious: Yes (Life-Threatening)
  Sender: FDA-Public Use
  Company Number: FR-JNJFOC-20080205973

PATIENT
  Age: 52 Year
  Sex: Female

DRUGS (10)
  1. OFLOCET [Suspect]
     Indication: DRUG USE FOR UNKNOWN INDICATION
     Route: 042
  2. PROGRAF [Suspect]
     Indication: DRUG USE FOR UNKNOWN INDICATION
     Route: 048
  3. VANCOMYCIN HCL [Suspect]
     Indication: DRUG USE FOR UNKNOWN INDICATION
     Route: 042
  4. CELLCEPT [Concomitant]
     Indication: LIVER TRANSPLANT
     Route: 048
  5. CYMEVAN [Concomitant]
     Indication: LIVER TRANSPLANT
     Route: 042
  6. LASILIX [Concomitant]
     Route: 065
  7. INSULINE [Concomitant]
     Route: 065
  8. SOLUPRED [Concomitant]
     Route: 065
  9. MOPRAL [Concomitant]
     Route: 065
  10. SPASFON [Concomitant]
     Route: 065

REACTIONS (1)
  - ISCHAEMIC CEREBRAL INFARCTION [None]
